FAERS Safety Report 10369155 (Version 1)
Quarter: 2014Q3

REPORT INFORMATION
  Report Type: Spontaneous
  Country: US (occurrence: US)
  Receive Date: 20140807
  Receipt Date: 20140807
  Transmission Date: 20150326
  Serious: Yes (Hospitalization)
  Sender: FDA-Public Use
  Company Number: US-INCYTE CORPORATION-2014IN002190

PATIENT
  Age: 58 Year
  Sex: Female

DRUGS (7)
  1. JAKAFI [Suspect]
     Active Substance: RUXOLITINIB
     Indication: WHITE BLOOD CELL COUNT
     Dosage: 15 MG, QD
     Route: 048
  2. JAKAFI [Suspect]
     Active Substance: RUXOLITINIB
     Indication: SPLEEN DISORDER
     Dosage: 15 MG, BID
     Route: 048
     Dates: start: 20130907
  3. METOPROLOL [Concomitant]
     Active Substance: METOPROLOL
  4. ALLOPURINOL. [Concomitant]
     Active Substance: ALLOPURINOL
  5. LISINOPRIL. [Concomitant]
     Active Substance: LISINOPRIL
  6. PROTONIX [Concomitant]
     Active Substance: PANTOPRAZOLE SODIUM
  7. ASPIRIN. [Concomitant]
     Active Substance: ASPIRIN

REACTIONS (4)
  - Diverticulitis [Unknown]
  - Large intestine perforation [Unknown]
  - Abscess intestinal [Unknown]
  - Flatulence [Unknown]

NARRATIVE: CASE EVENT DATE: 20140725
